FAERS Safety Report 21464882 (Version 1)
Quarter: 2022Q4

REPORT INFORMATION
  Report Type: Spontaneous
  Country: US (occurrence: None)
  Receive Date: 20221015
  Receipt Date: 20221015
  Transmission Date: 20230113
  Serious: Yes (Other)
  Sender: FDA-Public Use
  Company Number: None

PATIENT
  Age: 77 Year
  Sex: Female
  Weight: 65.25 kg

DRUGS (13)
  1. PAXLOVID [Suspect]
     Active Substance: NIRMATRELVIR\RITONAVIR
     Indication: COVID-19
     Dosage: FREQUENCY : TWICE A DAY;?
     Route: 048
     Dates: start: 20221012, end: 20221015
  2. SERTRALINE [Concomitant]
     Active Substance: SERTRALINE HYDROCHLORIDE
  3. CALCIUM CITRATE [Concomitant]
     Active Substance: CALCIUM CITRATE
  4. CHOLECALCIFEROL [Concomitant]
     Active Substance: CHOLECALCIFEROL
  5. DIOVAN [Concomitant]
     Active Substance: VALSARTAN
  6. omepremazole [Concomitant]
  7. PROBIOTICS NOS [Concomitant]
     Active Substance: PROBIOTICS NOS
  8. ATENOLOL [Concomitant]
     Active Substance: ATENOLOL
  9. ZETIA [Concomitant]
     Active Substance: EZETIMIBE
  10. CRESTOR [Concomitant]
     Active Substance: ROSUVASTATIN CALCIUM
  11. PROGESTERONE [Concomitant]
     Active Substance: PROGESTERONE
  12. Dhea versapro [Concomitant]
  13. ZINC [Concomitant]
     Active Substance: ZINC

REACTIONS (3)
  - Faeces discoloured [None]
  - Flatulence [None]
  - Dyschezia [None]

NARRATIVE: CASE EVENT DATE: 20221015
